FAERS Safety Report 15316204 (Version 2)
Quarter: 2018Q3

REPORT INFORMATION
  Report Type: Report from Study
  Country: IT (occurrence: US)
  Receive Date: 20180824
  Receipt Date: 20180904
  Transmission Date: 20181010
  Serious: Yes (Other)
  Sender: FDA-Public Use
  Company Number: IT-BAYER-2018-159912

PATIENT
  Age: 71 Year
  Sex: Female

DRUGS (9)
  1. NICOTINIC ACID [Suspect]
     Active Substance: NIACIN
  2. METFORMIN [Concomitant]
     Active Substance: METFORMIN HYDROCHLORIDE
  3. ACETYLSALICYLIC ACID({=100 MG) [Suspect]
     Active Substance: ASPIRIN
  4. LEVOTHYROXINE SODIUM. [Concomitant]
     Active Substance: LEVOTHYROXINE SODIUM
  5. ANTI?LIPIDE [Suspect]
     Active Substance: CLOFIBRATE\INOSITOL NIACINATE
  6. LOSARTAN. [Suspect]
     Active Substance: LOSARTAN
  7. CIPROFLOXACIN. [Suspect]
     Active Substance: CIPROFLOXACIN
  8. DIFLUNISAL. [Concomitant]
     Active Substance: DIFLUNISAL
  9. EZETIMIBE. [Concomitant]
     Active Substance: EZETIMIBE

REACTIONS (2)
  - Myopathy [None]
  - Rhabdomyolysis [None]
